FAERS Safety Report 18072494 (Version 1)
Quarter: 2020Q3

REPORT INFORMATION
  Report Type: Spontaneous
  Country: US (occurrence: US)
  Receive Date: 20200726
  Receipt Date: 20200726
  Transmission Date: 20201103
  Serious: No
  Sender: FDA-Public Use
  Company Number: None

PATIENT
  Age: 45 Year
  Sex: Female
  Weight: 75.15 kg

DRUGS (1)
  1. ESTRADIOL TRANSDERMAL SYSTEM [Suspect]
     Active Substance: ESTRADIOL
     Indication: MENOPAUSAL SYMPTOMS
     Dosage: ?          QUANTITY:4 PATCH(ES);OTHER FREQUENCY:WEEKLY;?
     Route: 062
     Dates: start: 20200721, end: 20200726

REACTIONS (3)
  - Device ineffective [None]
  - Product adhesion issue [None]
  - Product complaint [None]

NARRATIVE: CASE EVENT DATE: 20200723
